FAERS Safety Report 16934557 (Version 3)
Quarter: 2020Q1

REPORT INFORMATION
  Report Type: Report from Study
  Country: US (occurrence: US)
  Receive Date: 20191018
  Receipt Date: 20200321
  Transmission Date: 20200409
  Serious: Yes (Death, Life-Threatening, Hospitalization, Other)
  Sender: FDA-Public Use
  Company Number: NVSC2019US005429

PATIENT
  Age: 2 Year
  Sex: Male
  Weight: 64 kg

DRUGS (3)
  1. CYCLOPHOSPHAMIDE. [Concomitant]
     Active Substance: CYCLOPHOSPHAMIDE
     Indication: CHEMOTHERAPY
     Route: 065
  2. KYMRIAH [Suspect]
     Active Substance: TISAGENLECLEUCEL
     Indication: ACUTE LYMPHOCYTIC LEUKAEMIA
     Dosage: UNK
     Route: 041
     Dates: start: 20180508
  3. FLUDARABINE [Concomitant]
     Active Substance: FLUDARABINE PHOSPHATE
     Indication: CHEMOTHERAPY
     Route: 065

REACTIONS (24)
  - Arthralgia [Unknown]
  - Haemoglobin decreased [Unknown]
  - Cytopenia [Unknown]
  - Acute respiratory distress syndrome [Fatal]
  - Pulmonary toxicity [Unknown]
  - Adenovirus infection [Unknown]
  - Nephropathy toxic [Unknown]
  - Neutrophil count increased [Unknown]
  - Haematocrit decreased [Unknown]
  - Dependence on respirator [Unknown]
  - Candida infection [Unknown]
  - Acute lymphocytic leukaemia recurrent [Unknown]
  - Minimal residual disease [Unknown]
  - Pyrexia [Unknown]
  - Neurotoxicity [Recovered/Resolved]
  - White blood cell count increased [Unknown]
  - Fungal infection [Fatal]
  - Heart rate increased [Unknown]
  - Hypoxia [Unknown]
  - Confusional state [Unknown]
  - Platelet count decreased [Unknown]
  - Cytokine release syndrome [Recovered/Resolved with Sequelae]
  - Malignant neoplasm progression [Unknown]
  - Cytomegalovirus infection [Unknown]

NARRATIVE: CASE EVENT DATE: 20180512
